FAERS Safety Report 9148937 (Version 1)
Quarter: 2013Q1

REPORT INFORMATION
  Report Type: Spontaneous
  Country: US (occurrence: None)
  Receive Date: 20130301
  Receipt Date: 20130301
  Transmission Date: 20140127
  Serious: Yes (Death)
  Sender: FDA-Public Use
  Company Number: 2013-0889

PATIENT
  Age: 43 Year
  Sex: Male

DRUGS (1)
  1. SOMATULINE DEPOT INJECTION (90MG)(SOMATULINE SR)(LANREOTIDE)(LANREOTIDE ACETATE) [Suspect]
     Indication: ACROMEGALY
     Dosage: (90 MG,  1 IN 28 D)?AUG 2009 OR BEFORE NOV 2012?
     Route: 058
     Dates: start: 200908

REACTIONS (1)
  - Death [None]
